FAERS Safety Report 4517098-2 (Version None)
Quarter: 2004Q4

REPORT INFORMATION
  Report Type: 
  Country: None (occurrence: None)
  Receive Date: 20041202
  Receipt Date: 20041119
  Transmission Date: 20050328
  Serious: Yes (Hospitalization)
  Sender: FDA-Public Use
  Company Number: US-ABBOTT-04P-163-0281573-00

PATIENT
  Age: 6 Year
  Sex: Male

DRUGS (1)
  1. DEPAKOTE [Suspect]
     Indication: EPILEPSY
     Route: 048
     Dates: start: 20040801

REACTIONS (3)
  - CONVULSION [None]
  - LOSS OF CONSCIOUSNESS [None]
  - PSYCHOSOMATIC DISEASE [None]
